FAERS Safety Report 8507878-0 (Version None)
Quarter: 2012Q3

REPORT INFORMATION
  Report Type: 
  Country: None (occurrence: None)
  Receive Date: 20120709
  Receipt Date: 20120709
  Transmission Date: 20120928
  Serious: No
  Sender: FDA-Public Use
  Company Number: None

PATIENT

DRUGS (2)
  1. POTASSIUM CHLORIDE [Suspect]
     Dosage: ORA 40 MEQ/30 ML UNIT DOSE CUP
  2. POTASSIUM CHLORIDE [Suspect]
     Dosage: ORAL 20MEQ/15 ML UNIT DOSE CUP
     Route: 048

REACTIONS (3)
  - PRODUCT BARCODE ISSUE [None]
  - MEDICATION ERROR [None]
  - CIRCUMSTANCE OR INFORMATION CAPABLE OF LEADING TO MEDICATION ERROR [None]
